FAERS Safety Report 4747628-7 (Version None)
Quarter: 2005Q3

REPORT INFORMATION
  Report Type: 
  Country: None (occurrence: None)
  Receive Date: 20050818
  Receipt Date: 20050208
  Transmission Date: 20060218
  Serious: Yes (Hospitalization)
  Sender: FDA-Public Use
  Company Number: US-BRISTOL-MYERS SQUIBB COMPANY-12854071

PATIENT
  Age: 50 Year
  Sex: Male

DRUGS (4)
  1. TEQUIN [Suspect]
     Indication: OTITIS MEDIA
     Route: 048
     Dates: start: 20050207
  2. TEQUIN [Suspect]
     Indication: OTITIS EXTERNA
     Route: 048
     Dates: start: 20050207
  3. LISINOPRIL [Concomitant]
  4. HYDROCHLOROTHIAZIDE [Concomitant]

REACTIONS (4)
  - DIZZINESS [None]
  - HYPERHIDROSIS [None]
  - LOSS OF CONSCIOUSNESS [None]
  - NAUSEA [None]
